FAERS Safety Report 16481299 (Version 1)
Quarter: 2019Q2

REPORT INFORMATION
  Report Type: Report from Study
  Country: None (occurrence: US)
  Receive Date: 20190626
  Receipt Date: 20190626
  Transmission Date: 20190711
  Serious: Yes (Other)
  Sender: FDA-Public Use
  Company Number: US-ABBVIE-19K-163-2832711-00

PATIENT
  Age: 62 Year
  Sex: Male

DRUGS (1)
  1. HUMIRA [Suspect]
     Active Substance: ADALIMUMAB
     Indication: PRODUCT USED FOR UNKNOWN INDICATION
     Route: 058

REACTIONS (6)
  - Skin exfoliation [Unknown]
  - Chronic kidney disease [Unknown]
  - Temperature intolerance [Recovered/Resolved]
  - Skin irritation [Recovered/Resolved]
  - Acrochordon [Unknown]
  - Rash [Recovered/Resolved]

NARRATIVE: CASE EVENT DATE: 2018
